FAERS Safety Report 15376070 (Version 1)
Quarter: 2018Q3

REPORT INFORMATION
  Report Type: Spontaneous
  Country: US (occurrence: US)
  Receive Date: 20180912
  Receipt Date: 20180912
  Transmission Date: 20181010
  Serious: Yes (Other)
  Sender: FDA-Public Use
  Company Number: US-TEVA-2018-US-951826

PATIENT
  Age: 65 Year
  Sex: Male

DRUGS (1)
  1. CLONAZEPAM. [Suspect]
     Active Substance: CLONAZEPAM
     Route: 065

REACTIONS (9)
  - Abdominal pain upper [Unknown]
  - Pruritus [Unknown]
  - Pain in extremity [Unknown]
  - Bone pain [Unknown]
  - Dyspnoea [Unknown]
  - Abdominal pain [Unknown]
  - Lip swelling [Unknown]
  - Angina pectoris [Unknown]
  - Burning sensation [Unknown]
